FAERS Safety Report 9564731 (Version 3)
Quarter: 2013Q4

REPORT INFORMATION
  Report Type: Report from Study
  Country: CZ (occurrence: CZ)
  Receive Date: 20130930
  Receipt Date: 20131112
  Transmission Date: 20140711
  Serious: Yes (Hospitalization)
  Sender: FDA-Public Use
  Company Number: CZ-AMGEN-CZECT2013060858

PATIENT
  Age: 58 Year
  Sex: Male

DRUGS (10)
  1. ETANERCEPT [Suspect]
     Indication: RHEUMATOID ARTHRITIS
     Dosage: 50 MG, WEEKLY (LAST DOSE PRIOR TO SAE ON 20/JUN/2013)
     Route: 058
     Dates: start: 20120614
  2. CLOPIDOGREL SULFATE [Concomitant]
     Indication: MYOCARDIAL INFARCTION
     Dosage: 75 MG, UNK
     Route: 048
     Dates: start: 20130623
  3. METHOTREXATE [Concomitant]
     Indication: RHEUMATOID ARTHRITIS
     Dosage: (25 MG,QS)
     Route: 048
     Dates: start: 201112
  4. ACIDUM FOLICUM [Concomitant]
     Dosage: (10 MG,QS)
     Route: 048
     Dates: start: 201102
  5. APO-OMEPRAZOLE [Concomitant]
     Dosage: 20 MG, 1X/DAY
     Route: 048
     Dates: start: 201202
  6. MEDROL                             /00049601/ [Concomitant]
     Indication: RHEUMATOID ARTHRITIS
     Dosage: 8 MG, 1X/DAY
     Route: 048
     Dates: start: 20120223, end: 20121129
  7. MEDROL                             /00049601/ [Concomitant]
     Dosage: 4 MG, 1X/DAY
     Route: 048
     Dates: start: 20121130
  8. MODURETIC [Concomitant]
     Indication: HYPERTENSION
     Dosage: 1 DF, 1X/DAY
     Route: 048
     Dates: start: 2007
  9. LORISTA [Concomitant]
     Indication: HYPERTENSION
     Dosage: 50 MG, 1X/DAY
     Route: 048
     Dates: start: 2007
  10. IBALGIN [Concomitant]
     Indication: RHEUMATOID ARTHRITIS
     Dosage: 400 MG, AS NEEDED
     Route: 048

REACTIONS (1)
  - Myocardial infarction [Recovered/Resolved]
